FAERS Safety Report 25712136 (Version 3)
Quarter: 2025Q3

REPORT INFORMATION
  Report Type: Spontaneous
  Country: TR (occurrence: TR)
  Receive Date: 20250821
  Receipt Date: 20250916
  Transmission Date: 20251021
  Serious: No
  Sender: PFIZER
  Company Number: TR-PFIZER INC-202500166029

PATIENT

DRUGS (1)
  1. ENBREL [Suspect]
     Active Substance: ETANERCEPT

REACTIONS (2)
  - Device deployment issue [Unknown]
  - Needle issue [Unknown]
